FAERS Safety Report 24120233 (Version 1)
Quarter: 2024Q3

REPORT INFORMATION
  Report Type: Spontaneous
  Country: US (occurrence: US)
  Receive Date: 20240722
  Receipt Date: 20240722
  Transmission Date: 20241017
  Serious: Yes (Other)
  Sender: ELI LILLY AND CO
  Company Number: US-ELI_LILLY_AND_COMPANY-US202407006904

PATIENT
  Sex: Female

DRUGS (1)
  1. FORTEO [Suspect]
     Active Substance: TERIPARATIDE
     Indication: Product used for unknown indication
     Dosage: 20 UG, DAILY
     Route: 058
     Dates: start: 2014

REACTIONS (12)
  - Macular degeneration [Unknown]
  - Osteonecrosis of jaw [Unknown]
  - Thermal burns of eye [Unknown]
  - Back pain [Unknown]
  - Back disorder [Unknown]
  - Osteoarthritis [Unknown]
  - Middle ear effusion [Unknown]
  - Fall [Unknown]
  - Lung disorder [Unknown]
  - Bone loss [Unknown]
  - Ear injury [Unknown]
  - Dizziness [Unknown]
